FAERS Safety Report 6645228-5 (Version None)
Quarter: 2010Q1

REPORT INFORMATION
  Report Type: 
  Country: None (occurrence: None)
  Receive Date: 20100322
  Receipt Date: 20100316
  Transmission Date: 20100710
  Serious: Yes (Death, Life-Threatening, Hospitalization, Other)
  Sender: FDA-Public Use
  Company Number: FR-CELGENEUS-056-C5013-06030587

PATIENT
  Sex: Female
  Weight: 59 kg

DRUGS (3)
  1. CC-5013 [Suspect]
     Indication: MYELODYSPLASTIC SYNDROME
     Route: 048
     Dates: start: 20051024
  2. CC-5013 [Suspect]
     Route: 048
     Dates: start: 20060215, end: 20060313
  3. DESFERAL [Concomitant]
     Indication: MYELODYSPLASTIC SYNDROME
     Route: 065
     Dates: start: 20060201

REACTIONS (19)
  - ACUTE MYELOID LEUKAEMIA [None]
  - AORTIC THROMBOSIS [None]
  - CERUMEN IMPACTION [None]
  - COMA [None]
  - EAR PAIN [None]
  - FUNGAL INFECTION [None]
  - GENERAL PHYSICAL HEALTH DETERIORATION [None]
  - HEADACHE [None]
  - HYPOACUSIS [None]
  - JUGULAR VEIN THROMBOSIS [None]
  - LOCALISED OEDEMA [None]
  - MALIGNANT NEOPLASM PROGRESSION [None]
  - MYELODYSPLASTIC SYNDROME TRANSFORMATION [None]
  - PAIN [None]
  - PULMONARY ARTERY THROMBOSIS [None]
  - PULMONARY EMBOLISM [None]
  - PYELONEPHRITIS [None]
  - VENOUS THROMBOSIS [None]
  - WEIGHT DECREASED [None]
